FAERS Safety Report 14466360 (Version 1)
Quarter: 2018Q1

REPORT INFORMATION
  Report Type: Spontaneous
  Country: NL (occurrence: NL)
  Receive Date: 20180131
  Receipt Date: 20180131
  Transmission Date: 20180509
  Serious: Yes (Death, Hospitalization, Other)
  Sender: FDA-Public Use
  Company Number: NL-AUROBINDO-AUR-APL-2018-003686

PATIENT
  Age: 73 Year
  Sex: Male

DRUGS (3)
  1. PARACETAMOL [Suspect]
     Active Substance: ACETAMINOPHEN
     Indication: ANALGESIC THERAPY
     Dosage: 1 G, TID
     Route: 042
  2. PARACETAMOL [Interacting]
     Active Substance: ACETAMINOPHEN
     Dosage: 1 G, TID
     Route: 054
  3. FLUCLOXACILLIN [Interacting]
     Active Substance: FLUCLOXACILLIN
     Indication: PRODUCT USED FOR UNKNOWN INDICATION
     Dosage: 6 G, QD
     Route: 042

REACTIONS (5)
  - Metabolic acidosis [Unknown]
  - Cardiopulmonary failure [Fatal]
  - Confusional state [Unknown]
  - Anion gap increased [Unknown]
  - Drug interaction [Unknown]
